FAERS Safety Report 9500113 (Version 5)
Quarter: 2014Q2

REPORT INFORMATION
  Report Type: Spontaneous
  Country: IE (occurrence: IE)
  Receive Date: 20130905
  Receipt Date: 20140411
  Transmission Date: 20141212
  Serious: Yes (Other)
  Sender: FDA-Public Use
  Company Number: PHFR2013IE005052

PATIENT
  Age: 57 Year
  Sex: Male

DRUGS (12)
  1. CLOZARIL [Suspect]
     Indication: SCHIZOPHRENIA
     Dosage: 275 MG, DAILY
     Route: 048
     Dates: start: 20010701
  2. ARIPIPRAZOLE [Concomitant]
     Dosage: 25 MG
     Route: 048
  3. BENDROFLUMETHIAZIDE [Concomitant]
     Dosage: 2.5 MG
     Route: 048
  4. CRESTOR [Concomitant]
     Dosage: 10 MG
  5. SODIUM VALPROATE [Concomitant]
     Dosage: 100 MG, BID
  6. HYDROCORTISONE [Concomitant]
     Dosage: 1 % CREAM
  7. ISTIN [Concomitant]
     Dosage: 10 MG, QD
  8. LOPENAK [Concomitant]
     Dosage: 40 MG
  9. CLONAZEPAM [Concomitant]
     Dosage: 1.5 MG, TID
  10. ZIMOVANE [Concomitant]
     Dosage: 7.5 MG, NOCTE
  11. ASPIRIN [Concomitant]
     Dosage: 75 MG
  12. UROREC [Concomitant]
     Dosage: 8 MG, MANE

REACTIONS (4)
  - Urinary tract infection [Recovered/Resolved]
  - C-reactive protein increased [Unknown]
  - White blood cell count increased [Recovered/Resolved]
  - Neutrophil count increased [Recovered/Resolved]
